FAERS Safety Report 9251959 (Version 1)
Quarter: 2013Q2

REPORT INFORMATION
  Report Type: Spontaneous
  Country: US (occurrence: US)
  Receive Date: 20130424
  Receipt Date: 20130424
  Transmission Date: 20140414
  Serious: No
  Sender: FDA-Public Use
  Company Number: US-PFIZER INC-2013127301

PATIENT
  Age: 74 Year
  Sex: Male
  Weight: 102.4 kg

DRUGS (2)
  1. LYRICA [Suspect]
     Indication: POST HERPETIC NEURALGIA
     Dosage: 150 MG, 3X/DAY
     Route: 048
     Dates: start: 20130416, end: 20130418
  2. LYRICA [Suspect]
     Dosage: 300 MG, 3X/DAY
     Route: 048
     Dates: start: 20130418

REACTIONS (2)
  - Off label use [Unknown]
  - Pain [Unknown]
